FAERS Safety Report 23346584 (Version 1)
Quarter: 2023Q4

REPORT INFORMATION
  Report Type: Spontaneous
  Country: US (occurrence: None)
  Receive Date: 20231227
  Receipt Date: 20231227
  Transmission Date: 20240110
  Serious: No
  Sender: FDA-Public Use
  Company Number: None

PATIENT
  Age: 86 Year
  Sex: Male

DRUGS (1)
  1. POMALYST [Suspect]
     Active Substance: POMALIDOMIDE
     Indication: Plasma cell myeloma
     Dosage: 2 MG QD ORAL?
     Route: 048
     Dates: start: 20230920, end: 20231205

REACTIONS (5)
  - Amnesia [None]
  - Cough [None]
  - Asthenia [None]
  - Coordination abnormal [None]
  - Dysphagia [None]

NARRATIVE: CASE EVENT DATE: 20231205
